FAERS Safety Report 25778779 (Version 4)
Quarter: 2025Q4

REPORT INFORMATION
  Report Type: Spontaneous
  Country: GB (occurrence: GB)
  Receive Date: 20250909
  Receipt Date: 20251127
  Transmission Date: 20260118
  Serious: Yes (Hospitalization)
  Sender: CSL BEHRING
  Company Number: GB-BEH-2025201733

PATIENT
  Sex: Male

DRUGS (6)
  1. BERINERT [Suspect]
     Active Substance: HUMAN C1-ESTERASE INHIBITOR
     Indication: Angioedema
     Dosage: 1500 IU, PRN
     Route: 058
  2. BERINERT [Suspect]
     Active Substance: HUMAN C1-ESTERASE INHIBITOR
     Indication: Angioedema
     Dosage: 1500 IU, PRN
     Route: 058
  3. BERINERT [Suspect]
     Active Substance: HUMAN C1-ESTERASE INHIBITOR
     Dosage: 1500 IU, PRN
     Route: 042
  4. BERINERT [Suspect]
     Active Substance: HUMAN C1-ESTERASE INHIBITOR
     Dosage: 1500 IU, PRN
     Route: 042
  5. ICATIBANT [Concomitant]
     Active Substance: ICATIBANT ACETATE
     Dosage: 30MG/3ML
  6. ICATIBANT [Concomitant]
     Active Substance: ICATIBANT ACETATE
     Dosage: 30 MG

REACTIONS (4)
  - Illness [Recovered/Resolved]
  - Malaise [Unknown]
  - Product use in unapproved indication [Unknown]
  - Incorrect route of product administration [Unknown]
